FAERS Safety Report 6257185-4 (Version None)
Quarter: 2009Q3

REPORT INFORMATION
  Report Type: 
  Country: None (occurrence: None)
  Receive Date: 20090706
  Receipt Date: 20090625
  Transmission Date: 20100115
  Serious: Yes (Hospitalization, Other)
  Sender: FDA-Public Use
  Company Number: GB-JNJFOC-20040501540

PATIENT
  Sex: Female
  Weight: 57 kg

DRUGS (8)
  1. REMICADE [Suspect]
     Route: 042
  2. REMICADE [Suspect]
     Indication: PSORIATIC ARTHROPATHY
     Route: 042
  3. VIOXX [Concomitant]
  4. AMITRIPTYLINE [Concomitant]
  5. METHOTREXATE [Concomitant]
  6. AZATHIOPRINE [Concomitant]
  7. FOLIC ACID [Concomitant]
  8. TRAMADOL [Concomitant]

REACTIONS (3)
  - BASAL CELL CARCINOMA [None]
  - BOWEN'S DISEASE [None]
  - HYPERKERATOSIS [None]
